FAERS Safety Report 13894429 (Version 1)
Quarter: 2017Q3

REPORT INFORMATION
  Report Type: Spontaneous
  Country: US (occurrence: US)
  Receive Date: 20170816
  Receipt Date: 20170816
  Transmission Date: 20171127
  Serious: Yes (Other)
  Sender: FDA-Public Use
  Company Number: None

PATIENT
  Age: 93 Year
  Sex: Male
  Weight: 81 kg

DRUGS (1)
  1. XARELTO [Suspect]
     Active Substance: RIVAROXABAN
     Indication: ATRIAL FIBRILLATION
     Dosage: ?          QUANTITY:30 TABLET(S);OTHER FREQUENCY:WITH EVENING MEAL;?ORAL
     Route: 048
     Dates: start: 20170722, end: 20170802

REACTIONS (4)
  - Urine viscosity increased [None]
  - Thrombosis in device [None]
  - Chromaturia [None]
  - Dysuria [None]

NARRATIVE: CASE EVENT DATE: 20170802
